FAERS Safety Report 8272615 (Version 3)
Quarter: 2015Q1

REPORT INFORMATION
  Report Type: Spontaneous
  Country: US (occurrence: US)
  Receive Date: 20111202
  Receipt Date: 20150108
  Transmission Date: 20150721
  Serious: Yes (Other)
  Sender: FDA-Public Use
  Company Number: US-AMGEN-USASP2011053366

PATIENT
  Age: 81 Year
  Sex: Female

DRUGS (6)
  1. ADVIL (MEFENAMIC ACID) [Concomitant]
     Active Substance: MEFENAMIC ACID
     Dosage: UNK
  2. LOPRESSOR [Concomitant]
     Active Substance: METOPROLOL TARTRATE
     Dosage: UNK
  3. PROLIA [Suspect]
     Active Substance: DENOSUMAB
     Indication: OSTEOPOROSIS POSTMENOPAUSAL
     Dosage: 60 MG, Q6MO
     Route: 065
     Dates: start: 20110930
  4. CALTRATE [Concomitant]
     Active Substance: CALCIUM CARBONATE
     Dosage: UNK
  5. LIPITOR [Concomitant]
     Active Substance: ATORVASTATIN CALCIUM
     Dosage: UNK
  6. VITAMIN D [Concomitant]
     Active Substance: CHOLECALCIFEROL
     Dosage: 1 IU, Q2WK

REACTIONS (34)
  - Eye pain [Unknown]
  - Tension [Unknown]
  - Herpes zoster [Unknown]
  - Platelet count decreased [Unknown]
  - Chills [Recovered/Resolved]
  - Pruritus [Unknown]
  - Asthenia [Unknown]
  - Pain in extremity [Unknown]
  - Hypoaesthesia [Not Recovered/Not Resolved]
  - Bone pain [Unknown]
  - Muscle spasms [Recovered/Resolved]
  - Weight decreased [Unknown]
  - Malaise [Unknown]
  - Paraesthesia [Recovered/Resolved]
  - Fracture [Unknown]
  - Eye disorder [Not Recovered/Not Resolved]
  - Dry skin [Unknown]
  - Vitamin B12 decreased [Unknown]
  - Limb discomfort [Unknown]
  - Vitamin D increased [Unknown]
  - Rash [Unknown]
  - Cardiac flutter [Unknown]
  - Sleep disorder due to general medical condition, insomnia type [Unknown]
  - Headache [Unknown]
  - Bone disorder [Unknown]
  - Dyspepsia [Unknown]
  - Ear disorder [Unknown]
  - Back pain [Unknown]
  - Pain in jaw [Unknown]
  - Dizziness [Unknown]
  - Hot flush [Recovered/Resolved]
  - Hyperhidrosis [Unknown]
  - Toothache [Unknown]
  - Diplopia [Unknown]

NARRATIVE: CASE EVENT DATE: 20110930
